FAERS Safety Report 4713695-X (Version None)
Quarter: 2005Q3

REPORT INFORMATION
  Report Type: 
  Country: None (occurrence: None)
  Receive Date: 20050712
  Receipt Date: 20050627
  Transmission Date: 20060218
  Serious: Yes (Hospitalization)
  Sender: FDA-Public Use
  Company Number: USA050598520

PATIENT
  Age: 89 Year
  Sex: Female

DRUGS (2)
  1. FORTEO [Suspect]
     Indication: BONE DISORDER
     Dates: start: 20050401
  2. PRILOSEC (OMEPRAZOLE0 [Concomitant]

REACTIONS (7)
  - DRUG INEFFECTIVE [None]
  - DYSPEPSIA [None]
  - HERPES ZOSTER [None]
  - LIMB CRUSHING INJURY [None]
  - LOCALISED INFECTION [None]
  - PHARMACEUTICAL PRODUCT COMPLAINT [None]
  - RHINITIS [None]
